FAERS Safety Report 7132547-1 (Version None)
Quarter: 2010Q4

REPORT INFORMATION
  Report Type: 
  Country: None (occurrence: None)
  Receive Date: 20101202
  Receipt Date: 20101119
  Transmission Date: 20110411
  Serious: Yes (Other)
  Sender: FDA-Public Use
  Company Number: PHHY2010AU79751

PATIENT
  Sex: Male

DRUGS (11)
  1. GLIVEC [Suspect]
     Indication: GASTROINTESTINAL STROMAL TUMOUR
     Dosage: 400 MG/DAY
     Dates: start: 20071001, end: 20080301
  2. GLIVEC [Suspect]
     Dosage: 600 MG/DAY
     Dates: start: 20080301, end: 20080501
  3. FUROSEMIDE [Concomitant]
     Dosage: 40 MG, QD
  4. PERINDOPRIL [Concomitant]
  5. BISOPROLOL FUMARATE [Concomitant]
     Dosage: 05 MG, QD
  6. IRBESARTAN [Concomitant]
     Dosage: 150 MG, QD
  7. ISOSORBIDE MONONITRATE [Concomitant]
     Dosage: 60 MG, QD
  8. ATORVASTATIN CALCIUM [Concomitant]
     Dosage: 40 MG, QD
  9. CLOPIDOGREL [Concomitant]
     Dosage: 75 MG, QD
  10. ASPIRIN [Concomitant]
     Dosage: 100 MG, QD
  11. ESOMEPRAZOLE [Concomitant]
     Dosage: 20 MG, QD

REACTIONS (25)
  - AORTIC ARTERIOSCLEROSIS [None]
  - ASPARTATE AMINOTRANSFERASE INCREASED [None]
  - BILIRUBIN CONJUGATED INCREASED [None]
  - BLOOD ALBUMIN DECREASED [None]
  - BLOOD ALKALINE PHOSPHATASE INCREASED [None]
  - CARDIAC FAILURE [None]
  - DILATATION ATRIAL [None]
  - EMPHYSEMA [None]
  - GASTROINTESTINAL STROMAL TUMOUR [None]
  - GLOBULINS INCREASED [None]
  - LEFT ATRIAL DILATATION [None]
  - LUNG NEOPLASM [None]
  - MALIGNANT NEOPLASM PROGRESSION [None]
  - METASTASES TO LIVER [None]
  - MITRAL VALVE INCOMPETENCE [None]
  - MYOCARDIAL INFARCTION [None]
  - NAUSEA [None]
  - PLATELET COUNT INCREASED [None]
  - PROSTATOMEGALY [None]
  - RENAL DISORDER [None]
  - SPINAL OSTEOARTHRITIS [None]
  - TRICUSPID VALVE INCOMPETENCE [None]
  - VASCULAR GRAFT [None]
  - VENTRICULAR HYPERTROPHY [None]
  - VENTRICULAR HYPOKINESIA [None]
